FAERS Safety Report 6737773-9 (Version None)
Quarter: 2010Q2

REPORT INFORMATION
  Report Type: 
  Country: None (occurrence: None)
  Receive Date: 20100524
  Receipt Date: 20100520
  Transmission Date: 20101027
  Serious: Yes (Death, Hospitalization)
  Sender: FDA-Public Use
  Company Number: PHHY2010FR32702

PATIENT
  Age: 14 Year
  Sex: Female

DRUGS (7)
  1. LAMISIL [Suspect]
     Dosage: 250 MG, QD
     Route: 048
     Dates: start: 20100225, end: 20100324
  2. IMIPENEM AND CILASTATIN [Suspect]
     Dosage: 450 MG, BID
     Route: 042
     Dates: start: 20100219, end: 20100402
  3. VANCOMYCIN [Suspect]
     Dosage: 450 MG, BID
     Route: 042
     Dates: start: 20100219, end: 20100402
  4. ZOVIRAX [Suspect]
     Dosage: 150 MG, TID
     Route: 042
     Dates: start: 20100220, end: 20100414
  5. ZOLOFT [Concomitant]
     Dosage: UNK
     Dates: start: 20100316, end: 20100405
  6. ANCOTIL [Concomitant]
     Dosage: UNK
     Dates: start: 20100324
  7. BACTRIM [Concomitant]
     Dosage: UNK
     Dates: start: 20091230, end: 20100414

REACTIONS (9)
  - GENERAL PHYSICAL HEALTH DETERIORATION [None]
  - HYPERTHERMIA [None]
  - INFECTION [None]
  - INFLAMMATION [None]
  - PRURITUS [None]
  - RASH ERYTHEMATOUS [None]
  - SEPTIC SHOCK [None]
  - SKIN EXFOLIATION [None]
  - SKIN LESION [None]
